FAERS Safety Report 17860442 (Version 1)
Quarter: 2020Q2

REPORT INFORMATION
  Report Type: Spontaneous
  Country: CN (occurrence: CN)
  Receive Date: 20200604
  Receipt Date: 20200604
  Transmission Date: 20200714
  Serious: Yes (Other)
  Sender: FDA-Public Use
  Company Number: CN-ROCHE-2614533

PATIENT
  Age: 48 Year
  Sex: Female

DRUGS (16)
  1. DOCETAXEL. [Concomitant]
     Active Substance: DOCETAXEL
     Dosage: FOR THE FOURTH CYCLE
     Route: 065
     Dates: start: 20200201
  2. CARBOPLATIN. [Concomitant]
     Active Substance: CARBOPLATIN
     Dosage: DAY1 FOR THE FIFTH AND SIXTH CYCLES
     Route: 065
     Dates: start: 20200226
  3. HERCEPTIN [Suspect]
     Active Substance: TRASTUZUMAB
     Dosage: DAY1 FOR THE FIFTH AND SIXTH CYCLES
     Route: 065
     Dates: start: 20200226
  4. PERJETA [Suspect]
     Active Substance: PERTUZUMAB
     Route: 065
     Dates: start: 20200507
  5. GOSERELIN ACETATE [Concomitant]
     Active Substance: GOSERELIN ACETATE
     Indication: PRODUCT USED FOR UNKNOWN INDICATION
     Route: 058
     Dates: start: 20200512
  6. HERCEPTIN [Suspect]
     Active Substance: TRASTUZUMAB
     Indication: INVASIVE DUCTAL BREAST CARCINOMA
     Dosage: ON DAY1 FOR 3 CYCLES, FIRST DOSE UNKNOWN
     Route: 065
     Dates: start: 2019, end: 20200107
  7. HERCEPTIN [Suspect]
     Active Substance: TRASTUZUMAB
     Route: 065
     Dates: start: 20200507
  8. HERCEPTIN [Suspect]
     Active Substance: TRASTUZUMAB
     Dosage: FOR THE FOURTH CYCLE
     Route: 065
     Dates: start: 20200201
  9. PERJETA [Suspect]
     Active Substance: PERTUZUMAB
     Dosage: DAY1 FOR THE FIFTH AND SIXTH CYCLES
     Route: 065
     Dates: start: 20200226
  10. DOCETAXEL. [Concomitant]
     Active Substance: DOCETAXEL
     Dosage: DAY1 FOR THE FIFTH AND SIXTH CYCLES
     Route: 065
     Dates: start: 20200226
  11. PERJETA [Suspect]
     Active Substance: PERTUZUMAB
     Indication: INVASIVE DUCTAL BREAST CARCINOMA
     Dosage: INITIAL DOSE 840MG ON DAY1, FOLLOW BY 420MG FOR 3 CYCLES
     Route: 065
     Dates: start: 2019, end: 20200107
  12. DOCETAXEL. [Concomitant]
     Active Substance: DOCETAXEL
     Indication: INVASIVE DUCTAL BREAST CARCINOMA
     Dosage: ON DAY1 FOR 3 CYCLES
     Route: 065
     Dates: start: 2019, end: 20200107
  13. CARBOPLATIN. [Concomitant]
     Active Substance: CARBOPLATIN
     Indication: INVASIVE DUCTAL BREAST CARCINOMA
     Dosage: ON DAY1 FOR 3 CYCLES
     Route: 065
     Dates: start: 2019, end: 20200107
  14. CARBOPLATIN. [Concomitant]
     Active Substance: CARBOPLATIN
     Dosage: FOR THE FOURTH CYCLE
     Route: 065
     Dates: start: 20200201
  15. PERJETA [Suspect]
     Active Substance: PERTUZUMAB
     Dosage: FOR THE FOURTH CYCLE
     Route: 065
     Dates: start: 20200201
  16. MECAPEGFILGRASTIM [Concomitant]
     Route: 065
     Dates: start: 20200101

REACTIONS (3)
  - Radiation skin injury [Unknown]
  - Vomiting [Recovering/Resolving]
  - Nausea [Recovering/Resolving]

NARRATIVE: CASE EVENT DATE: 2020
